FAERS Safety Report 17649022 (Version 2)
Quarter: 2020Q2

REPORT INFORMATION
  Report Type: Report from Study
  Country: US (occurrence: US)
  Receive Date: 20200409
  Receipt Date: 20200415
  Transmission Date: 20200713
  Serious: Yes (Death)
  Sender: FDA-Public Use
  Company Number: US-BAYER-2020-058238

PATIENT
  Age: 68 Year
  Sex: Male
  Weight: 79.37 kg

DRUGS (2)
  1. XARELTO [Concomitant]
     Active Substance: RIVAROXABAN
     Dosage: UNK
  2. ADEMPAS [Suspect]
     Active Substance: RIOCIGUAT
     Dosage: 0.5 MG, TID
     Route: 048
     Dates: start: 20180727

REACTIONS (1)
  - Pulmonary arterial hypertension [Fatal]
